FAERS Safety Report 20756134 (Version 3)
Quarter: 2023Q2

REPORT INFORMATION
  Report Type: Other
  Country: US (occurrence: None)
  Receive Date: 20220427
  Receipt Date: 20230614
  Transmission Date: 20230722
  Serious: Yes (Hospitalization)
  Sender: FDA-Public Use
  Company Number: US-ROCHE-2672854

PATIENT
  Age: 61 Year
  Sex: Female
  Weight: 88.53 kg

DRUGS (28)
  1. OCREVUS [Suspect]
     Active Substance: OCRELIZUMAB
     Indication: Relapsing-remitting multiple sclerosis
     Dosage: THEN 600 MG EVERY 6 MONTHS?MOST RECENT DOSES GIVEN ON 08/AUG/2019, 07/FEB/2020, 07/AUG/2020
     Route: 042
     Dates: start: 20190725
  2. OCREVUS [Suspect]
     Active Substance: OCRELIZUMAB
     Indication: Systemic lupus erythematosus
     Dosage: 1ST HALF OF THE INITIAL OCREVUS DOSE
     Route: 042
     Dates: start: 20190807, end: 20190807
  3. OCREVUS [Suspect]
     Active Substance: OCRELIZUMAB
     Dosage: 2ND HALF OF THE INITIAL OCREVUS DOSE
     Route: 042
     Dates: start: 20190821, end: 20190821
  4. OCREVUS [Suspect]
     Active Substance: OCRELIZUMAB
     Route: 042
     Dates: start: 202002
  5. EFFEXOR XR [Concomitant]
     Active Substance: VENLAFAXINE HYDROCHLORIDE
     Indication: Depression
     Route: 048
  6. EFFEXOR XR [Concomitant]
     Active Substance: VENLAFAXINE HYDROCHLORIDE
     Route: 048
  7. EFFEXOR XR [Concomitant]
     Active Substance: VENLAFAXINE HYDROCHLORIDE
     Route: 048
  8. LEVOTHYROXINE [Concomitant]
     Active Substance: LEVOTHYROXINE
     Indication: Hypothyroidism
     Route: 048
  9. PANTOPRAZOLE [Concomitant]
     Active Substance: PANTOPRAZOLE
     Indication: Gastrooesophageal reflux disease
     Route: 048
  10. CARAFATE [Concomitant]
     Active Substance: SUCRALFATE
     Route: 048
  11. DITROPAN [Concomitant]
     Active Substance: OXYBUTYNIN CHLORIDE
     Indication: Neurogenic bladder
     Route: 048
  12. ZETIA [Concomitant]
     Active Substance: EZETIMIBE
     Indication: Blood cholesterol increased
     Route: 048
  13. TRAMADOL [Concomitant]
     Active Substance: TRAMADOL
     Indication: Pain
     Route: 048
  14. CELEBREX [Concomitant]
     Active Substance: CELECOXIB
     Indication: Pain
     Route: 048
  15. ALLEGRA [Concomitant]
     Active Substance: FEXOFENADINE HYDROCHLORIDE
     Indication: Seasonal allergy
     Dosage: OVER THE COUNTER STRENGTH (PATIENT UNSURE)
     Route: 048
  16. ALLEGRA [Concomitant]
     Active Substance: FEXOFENADINE HYDROCHLORIDE
     Route: 048
  17. VITAMIN D3 [Concomitant]
     Active Substance: CHOLECALCIFEROL
     Route: 048
  18. CITRUCEL [Concomitant]
     Active Substance: METHYLCELLULOSE (4000 MPA.S)
     Indication: Bowel movement irregularity
     Route: 048
  19. CHONDROITIN SULFATE A\GLUCOSAMINE [Concomitant]
     Active Substance: CHONDROITIN SULFATE A\GLUCOSAMINE
     Route: 048
  20. LORAZEPAM [Concomitant]
     Active Substance: LORAZEPAM
     Indication: Anxiety
     Dosage: AS NEEDED
     Route: 048
  21. PROVIGIL [Concomitant]
     Active Substance: MODAFINIL
     Indication: Somnolence
     Dosage: 200 MG ONE TO TWO HOURS BEFORE NOON
     Route: 048
  22. SYNTHROID [Concomitant]
     Active Substance: LEVOTHYROXINE SODIUM
     Indication: Hypothyroidism
     Route: 048
  23. BACLOFEN [Concomitant]
     Active Substance: BACLOFEN
     Route: 048
  24. PROTONIX [Concomitant]
     Active Substance: PANTOPRAZOLE SODIUM
     Route: 048
  25. PEPCID [Concomitant]
     Active Substance: FAMOTIDINE
     Route: 048
  26. PEPCID [Concomitant]
     Active Substance: FAMOTIDINE
     Route: 048
  27. SUCRALFATE [Concomitant]
     Active Substance: SUCRALFATE
     Dosage: DOSE PROVIDED AS 1 GM- 10 ML SUSPENSION PARP 2 TSP 10 ML
     Route: 048
  28. OXYBUTYNIN [Concomitant]
     Active Substance: OXYBUTYNIN
     Indication: Urinary incontinence
     Route: 048

REACTIONS (9)
  - Meniscus injury [Recovered/Resolved]
  - Fall [Unknown]
  - Muscular weakness [Not Recovered/Not Resolved]
  - Pain in extremity [Not Recovered/Not Resolved]
  - Cough [Not Recovered/Not Resolved]
  - COVID-19 [Recovered/Resolved]
  - Off label use [Unknown]
  - Alopecia [Not Recovered/Not Resolved]
  - Arthralgia [Unknown]

NARRATIVE: CASE EVENT DATE: 20220101
